FAERS Safety Report 17553065 (Version 3)
Quarter: 2020Q1

REPORT INFORMATION
  Report Type: Spontaneous
  Country: US (occurrence: US)
  Receive Date: 20200317
  Receipt Date: 20200323
  Transmission Date: 20200409
  Serious: Yes (Life-Threatening, Other)
  Sender: FDA-Public Use
  Company Number: NVSC2020US072896

PATIENT
  Sex: Female

DRUGS (1)
  1. EGATEN [Suspect]
     Active Substance: TRICLABENDAZOLE
     Indication: PRODUCT USED FOR UNKNOWN INDICATION
     Dosage: UNK
     Route: 065

REACTIONS (28)
  - Head injury [Unknown]
  - Vomiting [Unknown]
  - Near death experience [Unknown]
  - Rib fracture [Unknown]
  - Trematode infection [Unknown]
  - Loss of consciousness [Unknown]
  - Fracture [Unknown]
  - Helminthic infection [Unknown]
  - Abdominal distension [Unknown]
  - Limb mass [Unknown]
  - Heart rate increased [Unknown]
  - Skin discolouration [Unknown]
  - Intra-abdominal pressure increased [Unknown]
  - Insomnia [Unknown]
  - Memory impairment [Unknown]
  - Fall [Unknown]
  - Blood test abnormal [Unknown]
  - Gait disturbance [Unknown]
  - Upper limb fracture [Unknown]
  - Malaise [Unknown]
  - Dizziness [Unknown]
  - Spinal fracture [Unknown]
  - Fascioliasis [Unknown]
  - Circulatory collapse [Unknown]
  - Pain [Unknown]
  - Back injury [Unknown]
  - Immune system disorder [Unknown]
  - Nausea [Unknown]
